FAERS Safety Report 7328290-6 (Version None)
Quarter: 2011Q1

REPORT INFORMATION
  Report Type: 
  Country: None (occurrence: None)
  Receive Date: 20110223
  Receipt Date: 20110209
  Transmission Date: 20110831
  Serious: Yes (Hospitalization)
  Sender: FDA-Public Use
  Company Number: 2011S1000121

PATIENT
  Age: 76 Year
  Sex: Male

DRUGS (8)
  1. NU-LOTAN [Concomitant]
  2. AMLODIPINE [Concomitant]
  3. PANCREAZE [Concomitant]
  4. BENZBROMARONE [Concomitant]
  5. LORATADINE [Concomitant]
  6. FAMOTIDINE [Concomitant]
  7. LIVALO [Suspect]
     Indication: HYPERCHOLESTEROLAEMIA
     Dosage: 1 MG;QOD;PO
     Route: 048
     Dates: start: 20101001, end: 20110128
  8. SELBEX [Concomitant]

REACTIONS (3)
  - RHABDOMYOLYSIS [None]
  - PYREXIA [None]
  - RENAL IMPAIRMENT [None]
